FAERS Safety Report 6226717-4 (Version None)
Quarter: 2009Q2

REPORT INFORMATION
  Report Type: 
  Country: None (occurrence: None)
  Receive Date: 20090612
  Receipt Date: 20090603
  Transmission Date: 20091009
  Serious: Yes (Hospitalization)
  Sender: FDA-Public Use
  Company Number: AU-ROCHE-636110

PATIENT
  Age: 17 Year
  Sex: Male

DRUGS (4)
  1. ROACCUTANE [Suspect]
     Indication: ACNE
     Route: 048
  2. ROACCUTANE [Suspect]
     Dosage: DOSE INCREASED
     Route: 048
  3. ROACCUTANE [Suspect]
     Dosage: DOSE REDUCED
     Route: 048
  4. FLUOXETINE HCL [Concomitant]

REACTIONS (6)
  - ANXIETY [None]
  - DERMATITIS ACNEIFORM [None]
  - ECZEMA [None]
  - MOOD ALTERED [None]
  - PANIC ATTACK [None]
  - SUICIDAL IDEATION [None]
